FAERS Safety Report 5082731-6 (Version None)
Quarter: 2006Q3

REPORT INFORMATION
  Report Type: 
  Country: None (occurrence: None)
  Receive Date: 20060817
  Receipt Date: 20060802
  Transmission Date: 20061208
  Serious: Yes (Hospitalization, Other)
  Sender: FDA-Public Use
  Company Number: US-AMGEN-STX188891

PATIENT
  Sex: Female

DRUGS (3)
  1. ENBREL [Suspect]
     Indication: RHEUMATOID ARTHRITIS
     Route: 058
     Dates: start: 19980101
  2. METHOTREXATE [Concomitant]
     Route: 048
     Dates: start: 19820101
  3. PLAQUENIL [Concomitant]
     Route: 048
     Dates: start: 20010101

REACTIONS (15)
  - ARTHRODESIS [None]
  - COLITIS [None]
  - CONDITION AGGRAVATED [None]
  - DEVICE BREAKAGE [None]
  - DIVERTICULITIS [None]
  - FALL [None]
  - FIBULA FRACTURE [None]
  - FRACTURE REDUCTION [None]
  - GASTRIC ULCER [None]
  - GASTRITIS [None]
  - GASTROOESOPHAGEAL REFLUX DISEASE [None]
  - JOINT ARTHROPLASTY [None]
  - KNEE ARTHROPLASTY [None]
  - RHEUMATOID ARTHRITIS [None]
  - UPPER LIMB FRACTURE [None]
